FAERS Safety Report 11066054 (Version 1)
Quarter: 2015Q2

REPORT INFORMATION
  Report Type: Spontaneous
  Country: DK (occurrence: None)
  Receive Date: 20150423
  Receipt Date: 20150423
  Transmission Date: 20150821
  Serious: Yes (Life-Threatening, Hospitalization, Disabling)
  Sender: FDA-Public Use
  Company Number: DK-2015-1328

PATIENT
  Age: 67 Year
  Sex: Female
  Weight: 63 kg

DRUGS (8)
  1. PERJETA [Suspect]
     Active Substance: PERTUZUMAB
     Indication: BREAST CANCER METASTATIC
     Route: 042
     Dates: start: 20150218
  2. PANODIL (PARACETAMOL) [Concomitant]
  3. PANTOLOC (PANTOPRAZOLE SODIUM SESQUIHYDRATE) [Concomitant]
  4. PREDNISOLONE. [Concomitant]
     Active Substance: PREDNISOLONE
  5. ZOMETA [Concomitant]
     Active Substance: ZOLEDRONIC ACID
  6. NAVELBINE [Suspect]
     Active Substance: VINORELBINE TARTRATE
     Indication: BREAST CANCER METASTATIC
     Route: 042
     Dates: start: 20150218, end: 20150225
  7. TRAMADOL HYDROCHLORIDE. [Concomitant]
     Active Substance: TRAMADOL HYDROCHLORIDE
  8. HERCEPTIN [Suspect]
     Active Substance: TRASTUZUMAB
     Indication: BREAST CANCER METASTATIC
     Route: 042
     Dates: start: 20150217

REACTIONS (5)
  - Ejection fraction decreased [None]
  - Pulmonary oedema [None]
  - Febrile neutropenia [None]
  - Cardiac failure [None]
  - Respiratory failure [None]

NARRATIVE: CASE EVENT DATE: 201502
